FAERS Safety Report 6099955-1 (Version None)
Quarter: 2009Q1

REPORT INFORMATION
  Report Type: 
  Country: None (occurrence: None)
  Receive Date: 20090227
  Receipt Date: 20090227
  Transmission Date: 20090719
  Serious: Yes (Other)
  Sender: FDA-Public Use
  Company Number: None

PATIENT
  Age: 33 Year
  Sex: Female

DRUGS (1)
  1. DEPAKOTE [Suspect]
     Dosage: 500MG ONCE PO BID

REACTIONS (6)
  - AFFECT LABILITY [None]
  - ANGER [None]
  - BIPOLAR DISORDER [None]
  - CONDITION AGGRAVATED [None]
  - MOOD SWINGS [None]
  - THERAPEUTIC RESPONSE UNEXPECTED WITH DRUG SUBSTITUTION [None]
